FAERS Safety Report 9492451 (Version 1)
Quarter: 2013Q3

REPORT INFORMATION
  Report Type: Report from Study
  Country: NL (occurrence: NL)
  Receive Date: 20130830
  Receipt Date: 20130830
  Transmission Date: 20140515
  Serious: Yes (Other)
  Sender: FDA-Public Use
  Company Number: NL-B.I. PHARMACEUTICALS,INC./RIDGEFIELD-2013-NL-00549NL

PATIENT
  Age: 59 Year
  Sex: Male
  Weight: 70 kg

DRUGS (4)
  1. MICARDIS 20 MG [Suspect]
     Dates: start: 201212
  2. AMLODIPINE [Suspect]
     Indication: HYPERTENSION
     Dosage: 5 MG
     Dates: start: 20130206, end: 20130211
  3. METOPROLOL [Concomitant]
     Dosage: 50 MG
     Dates: start: 20120101
  4. HYDROCHLOORTHIAZIDE [Concomitant]
     Dosage: 25 MG
     Dates: start: 20120101

REACTIONS (3)
  - Tonsil cancer [Unknown]
  - Tonsillitis [Not Recovered/Not Resolved]
  - Oropharyngeal pain [Unknown]
